FAERS Safety Report 7457343-7 (Version None)
Quarter: 2011Q2

REPORT INFORMATION
  Report Type: 
  Country: None (occurrence: None)
  Receive Date: 20110504
  Receipt Date: 20100928
  Transmission Date: 20111010
  Serious: No
  Sender: FDA-Public Use
  Company Number: US-KINGPHARMUSA00001-K201001215

PATIENT
  Sex: Female

DRUGS (2)
  1. AVINZA [Suspect]
     Indication: ARTHRITIS
     Dosage: 30 MG, QD
     Route: 048
  2. AVINZA [Suspect]
     Indication: BACK INJURY
     Dosage: 30 MG, QD
     Route: 048

REACTIONS (4)
  - DRUG WITHDRAWAL SYNDROME [None]
  - CRYING [None]
  - ANGER [None]
  - FEELING ABNORMAL [None]
